FAERS Safety Report 6309748-5 (Version None)
Quarter: 2009Q3

REPORT INFORMATION
  Report Type: 
  Country: None (occurrence: None)
  Receive Date: 20090813
  Receipt Date: 20090813
  Transmission Date: 20100115
  Serious: No
  Sender: FDA-Public Use
  Company Number: None

PATIENT
  Sex: Female
  Weight: 62.1428 kg

DRUGS (1)
  1. ALENDRONATE 70 MG WATSON LABORITORIES [Suspect]
     Indication: OSTEOPENIA
     Dosage: 1 1 A WEEK PO
     Route: 048
     Dates: start: 20090301, end: 20090601

REACTIONS (2)
  - PAIN IN JAW [None]
  - TOOTHACHE [None]
